FAERS Safety Report 23776013 (Version 1)
Quarter: 2024Q2

REPORT INFORMATION
  Report Type: Spontaneous
  Country: US (occurrence: US)
  Receive Date: 20240424
  Receipt Date: 20240424
  Transmission Date: 20240715
  Serious: No
  Sender: FDA-Public Use
  Company Number: US-HALEON-2169825

PATIENT

DRUGS (1)
  1. SENSODYNE FRESH MINT [Suspect]
     Active Substance: POTASSIUM NITRATE\SODIUM FLUORIDE
     Indication: Product used for unknown indication
     Dosage: EXPDATE:20250831
     Dates: start: 20240417, end: 20240419

REACTIONS (1)
  - Burning mouth syndrome [Unknown]

NARRATIVE: CASE EVENT DATE: 20240418
